FAERS Safety Report 15397754 (Version 3)
Quarter: 2018Q4

REPORT INFORMATION
  Report Type: Spontaneous
  Country: US (occurrence: US)
  Receive Date: 20180918
  Receipt Date: 20181228
  Transmission Date: 20190204
  Serious: Yes (Hospitalization, Other)
  Sender: FDA-Public Use
  Company Number: US-OTSUKA-2018_019362

PATIENT
  Sex: Male

DRUGS (1)
  1. ABILIFY [Suspect]
     Active Substance: ARIPIPRAZOLE
     Indication: BIPOLAR DISORDER
     Dosage: 20 MG, QD
     Route: 065
     Dates: start: 20020101, end: 20100101

REACTIONS (11)
  - Obsessive-compulsive disorder [Recovered/Resolved]
  - Divorced [Unknown]
  - Compulsive sexual behaviour [Recovered/Resolved]
  - Compulsive shopping [Recovered/Resolved]
  - Rotator cuff syndrome [Unknown]
  - Economic problem [Unknown]
  - Loss of employment [Unknown]
  - Gambling disorder [Recovered/Resolved]
  - Mental disorder [Unknown]
  - Oesophageal achalasia [Unknown]
  - Homeless [Unknown]

NARRATIVE: CASE EVENT DATE: 2002
